FAERS Safety Report 5920227-7 (Version None)
Quarter: 2008Q4

REPORT INFORMATION
  Report Type: 
  Country: None (occurrence: None)
  Receive Date: 20081016
  Receipt Date: 20080507
  Transmission Date: 20090506
  Serious: No
  Sender: FDA-Public Use
  Company Number: A0727922A

PATIENT
  Age: 4 Year
  Sex: Male

DRUGS (1)
  1. CEFTIN [Suspect]
     Indication: DRUG USE FOR UNKNOWN INDICATION

REACTIONS (2)
  - DRUG ADMINISTRATION ERROR [None]
  - DRUG DISPENSING ERROR [None]
